FAERS Safety Report 7943298-5 (Version None)
Quarter: 2011Q4

REPORT INFORMATION
  Report Type: 
  Country: None (occurrence: None)
  Receive Date: 20111128
  Receipt Date: 20111123
  Transmission Date: 20120403
  Serious: Yes (Hospitalization)
  Sender: FDA-Public Use
  Company Number: PHHY2011MA103064

PATIENT
  Sex: Female

DRUGS (1)
  1. SEBIVO [Suspect]
     Indication: HEPATITIS B
     Dosage: UNK UKN, UNK
     Route: 048
     Dates: start: 20111025, end: 20111107

REACTIONS (3)
  - CEREBRAL HAEMATOMA [None]
  - MYOSITIS [None]
  - HEMIPARESIS [None]
